FAERS Safety Report 10480486 (Version 3)
Quarter: 2015Q1

REPORT INFORMATION
  Report Type: Spontaneous
  Country: JP (occurrence: None)
  Receive Date: 20140925
  Receipt Date: 20150324
  Transmission Date: 20150720
  Serious: Yes (Hospitalization, Other)
  Sender: FDA-Public Use
  Company Number: 2014MPI01202

PATIENT
  Age: 45 Year
  Sex: Male
  Weight: 60 kg

DRUGS (7)
  1. MEROPENEM (MEROPENEM TRIHYDRATE) [Concomitant]
     Active Substance: MEROPENEM
  2. ACETAMINOPHEN. [Concomitant]
     Active Substance: ACETAMINOPHEN
  3. VANCOMYCIN HYDROCHLORIDE (VANCOMYCIN HYDROCHLORIDE) [Concomitant]
     Active Substance: VANCOMYCIN HYDROCHLORIDE
  4. MEROPENEM (MEROPENEM TRIHYDRATE) [Concomitant]
     Active Substance: MEROPENEM
  5. ADCETRIS [Suspect]
     Active Substance: BRENTUXIMAB VEDOTIN
     Indication: HODGKIN^S DISEASE
     Dosage: 1.8 MG/KG, Q21D, IV DRIP
     Route: 041
     Dates: start: 20140902
  6. BAKTAR (SULFAMETHOXAZOLE, TRIMETHOPRIM) TABLET [Concomitant]
     Active Substance: SULFAMETHOXAZOLE\TRIMETHOPRIM
  7. ITRIZOLE (ITRACONAZOLE) [Concomitant]

REACTIONS (3)
  - Peripheral sensory neuropathy [None]
  - Stem cell transplant [None]
  - Acute respiratory distress syndrome [None]

NARRATIVE: CASE EVENT DATE: 20140905
